FAERS Safety Report 8193848-1 (Version None)
Quarter: 2012Q1

REPORT INFORMATION
  Report Type: 
  Country: None (occurrence: None)
  Receive Date: 20120308
  Receipt Date: 20120305
  Transmission Date: 20120608
  Serious: Yes (Congenital Anomaly)
  Sender: FDA-Public Use
  Company Number: US-GILEAD-2010-0030840

PATIENT
  Sex: Male

DRUGS (8)
  1. ACETAMINOPHEN [Concomitant]
     Route: 064
  2. FOLIC ACID [Concomitant]
     Route: 064
  3. TENOFOVIR DISOPROXIL FUMARATE [Suspect]
     Indication: PROPHYLAXIS AGAINST HIV INFECTION
     Route: 064
  4. DOXYCYCLINE [Concomitant]
     Route: 064
  5. METRONIDAZOLE [Concomitant]
     Route: 064
  6. IBUPROFEN [Concomitant]
     Route: 064
  7. FERROUS SULFATE TAB [Concomitant]
     Route: 064
  8. AMOXICILLIN [Concomitant]
     Route: 064

REACTIONS (3)
  - MATERNAL DRUGS AFFECTING FOETUS [None]
  - POST PROCEDURAL HAEMORRHAGE [None]
  - ANKYLOGLOSSIA CONGENITAL [None]
